FAERS Safety Report 25325123 (Version 3)
Quarter: 2025Q4

REPORT INFORMATION
  Report Type: Report from Study
  Country: JP (occurrence: JP)
  Receive Date: 20250516
  Receipt Date: 20251119
  Transmission Date: 20260118
  Serious: Yes (Hospitalization)
  Sender: EISAI
  Company Number: JP-Eisai-EC-2025-187676

PATIENT
  Age: 83 Year
  Sex: Female
  Weight: 34 kg

DRUGS (2)
  1. LEQEMBI [Suspect]
     Active Substance: LECANEMAB-IRMB
     Indication: Cognitive disorder
     Route: 042
     Dates: start: 20241223, end: 20250331
  2. AMLODIPINE [Concomitant]
     Active Substance: AMLODIPINE BESYLATE
     Indication: Cognitive disorder
     Route: 048

REACTIONS (2)
  - Depressive symptom [Recovering/Resolving]
  - Neuropsychological symptoms [Recovering/Resolving]

NARRATIVE: CASE EVENT DATE: 20250210
